FAERS Safety Report 24195718 (Version 1)
Quarter: 2024Q3

REPORT INFORMATION
  Report Type: Report from Study
  Country: CL (occurrence: CL)
  Receive Date: 20240809
  Receipt Date: 20240809
  Transmission Date: 20241017
  Serious: Yes (Death, Hospitalization, Other)
  Sender: ABBVIE
  Company Number: CL-ABBVIE-5871438

PATIENT
  Age: 76 Year
  Sex: Female

DRUGS (1)
  1. HUMIRA [Suspect]
     Active Substance: ADALIMUMAB
     Indication: Rheumatoid arthritis
     Dosage: FORM STRENGTH: 40 MG
     Route: 058
     Dates: start: 20181226

REACTIONS (3)
  - Pulmonary fibrosis [Fatal]
  - Bronchitis [Fatal]
  - Immunodeficiency [Unknown]

NARRATIVE: CASE EVENT DATE: 20240701
